FAERS Safety Report 25230209 (Version 1)
Quarter: 2025Q2

REPORT INFORMATION
  Report Type: Report from Study
  Country: US (occurrence: US)
  Receive Date: 20250423
  Receipt Date: 20250423
  Transmission Date: 20250717
  Serious: Yes (Other)
  Sender: NOVARTIS
  Company Number: US-002147023-NVSC2025US064438

PATIENT
  Sex: Male

DRUGS (1)
  1. LEQVIO [Suspect]
     Active Substance: INCLISIRAN SODIUM
     Indication: Product used for unknown indication
     Route: 058

REACTIONS (17)
  - Haemorrhage intracranial [Unknown]
  - Angina pectoris [Unknown]
  - Pneumonia [Unknown]
  - Coronary artery occlusion [Unknown]
  - Dizziness [Unknown]
  - Dyspnoea [Unknown]
  - Fall [Unknown]
  - Cough [Unknown]
  - Productive cough [Unknown]
  - Diarrhoea [Unknown]
  - Pain [Unknown]
  - Pollakiuria [Unknown]
  - Nocturia [Unknown]
  - Bronchitis [Unknown]
  - Hypokinesia [Unknown]
  - Chest discomfort [Unknown]
  - Cyanosis [Unknown]
